FAERS Safety Report 7065216-7 (Version None)
Quarter: 2010Q4

REPORT INFORMATION
  Report Type: 
  Country: None (occurrence: None)
  Receive Date: 20101019
  Receipt Date: 20101005
  Transmission Date: 20110411
  Serious: Yes (Hospitalization)
  Sender: FDA-Public Use
  Company Number: GER/USA/10/0016239

PATIENT
  Age: 85 Year
  Sex: Male

DRUGS (18)
  1. OMEPRAZOLE [Suspect]
     Indication: PRODUCT USED FOR UNKNOWN INDICATION
     Dosage: 20 MG, 1 IN 1 D, ORAL
     Route: 048
  2. CITALOPRAM HYDROBROMIDE [Suspect]
     Indication: BACK PAIN
     Dosage: 60 MG, 1 IN 1 D, ORAL
     Route: 048
  3. TIZANIDINE HCL [Suspect]
     Indication: PRODUCT USED FOR UNKNOWN INDICATION
     Dosage: 2 MG, 1 IN 8 HR, ORAL
     Route: 048
  4. THEOPHYLLINE [Suspect]
     Indication: PRODUCT USED FOR UNKNOWN INDICATION
     Dosage: 200 MG, 1 IN 12 HR, ORAL
     Route: 048
  5. LISINOPRIL [Suspect]
     Indication: PRODUCT USED FOR UNKNOWN INDICATION
     Dosage: 40 MG, 1 IN 1 D, ORAL
     Route: 048
  6. TRIMETHOPRIM [Suspect]
     Indication: PRODUCT USED FOR UNKNOWN INDICATION
  7. SULFAMETHOXAZOLE [Suspect]
     Indication: PRODUCT USED FOR UNKNOWN INDICATION
  8. ACETAMINOPHEN [Concomitant]
  9. CHLORPROMAZINE HYDROCHLORIDE (CHLORPROMAZINE HYDRCHLORIDE) [Concomitant]
  10. FINASTERIDE [Concomitant]
  11. LIDOCAINE [Concomitant]
  12. METFORMIN HCL [Concomitant]
  13. PRAMIPEXOLE DIHYDROCHLORIDE [Concomitant]
  14. SIMVASTATIN [Concomitant]
  15. DICLOFENAC SODIUM [Concomitant]
  16. HYDROCODONE W/PARACETAMOL (PROCET /01554201/) [Concomitant]
  17. ONDANSETRON [Concomitant]
  18. GUAIFENESIN/CODEINE (CHERACOL /00693301/) [Concomitant]

REACTIONS (7)
  - ABSCESS [None]
  - BLOOD CREATININE INCREASED [None]
  - BLOOD UREA INCREASED [None]
  - DRUG INTERACTION [None]
  - HYPERKALAEMIA [None]
  - HYPOTENSION [None]
  - SINUS BRADYCARDIA [None]
